FAERS Safety Report 10331979 (Version 4)
Quarter: 2014Q3

REPORT INFORMATION
  Report Type: Report from Study
  Country: KR (occurrence: KR)
  Receive Date: 20140722
  Receipt Date: 20140813
  Transmission Date: 20150326
  Serious: Yes (Hospitalization, Other)
  Sender: FDA-Public Use
  Company Number: KR-OTSUKA-JP-2014-15583

PATIENT
  Age: 74 Year
  Sex: Male

DRUGS (23)
  1. ARICEPT [Concomitant]
     Active Substance: DONEPEZIL HYDROCHLORIDE
     Dosage: UNK
     Dates: start: 20110617, end: 20120110
  2. ACAMPROSATE [Concomitant]
     Active Substance: ACAMPROSATE
     Dosage: UNK
     Dates: start: 20110615, end: 20110801
  3. BLINDED CILOSTAZOL [Suspect]
     Active Substance: CILOSTAZOL
     Indication: CEREBRAL INFARCTION
     Dosage: UNK
     Route: 048
     Dates: start: 20110224, end: 20120126
  4. COZAAR [Concomitant]
     Active Substance: LOSARTAN POTASSIUM
     Dosage: UNK
     Dates: start: 20101106, end: 20120110
  5. NEUTOIN [Concomitant]
     Dosage: UNK
     Dates: start: 20110113, end: 20120110
  6. FLOMOX [Concomitant]
     Active Substance: CEFCAPENE PIVOXIL HYDROCHLORIDE HYDRATE
     Dosage: UNK
     Dates: start: 20110725, end: 20110801
  7. VARIDASE [Concomitant]
     Dosage: UNK
     Dates: start: 20110725, end: 20110801
  8. PLACEBO [Suspect]
     Active Substance: UNSPECIFIED INGREDIENT
     Indication: CEREBRAL INFARCTION
     Dosage: UNK
     Route: 048
     Dates: start: 20110224, end: 20120126
  9. LORELCO [Suspect]
     Active Substance: PROBUCOL
     Indication: CEREBRAL INFARCTION
     Dosage: 250 MG MILLIGRAM(S), BID
     Route: 048
     Dates: start: 20110224, end: 20120126
  10. LEVEMIR [Concomitant]
     Active Substance: INSULIN DETEMIR
     Dosage: UNK
     Dates: start: 20120126
  11. BLINDED PROBUCOL [Suspect]
     Active Substance: PROBUCOL
     Indication: CEREBRAL INFARCTION
     Dosage: UNK
     Route: 048
     Dates: start: 20110224, end: 20120126
  12. K-CONTIN [Concomitant]
     Dosage: UNK
     Dates: start: 20120124
  13. MUCOPECT [Concomitant]
     Dosage: UNK
     Dates: start: 20120118
  14. MULTIVITAMIN [Concomitant]
     Active Substance: VITAMINS
     Dosage: UNK
     Dates: start: 20110614, end: 20110618
  15. COMBI X [Concomitant]
     Dosage: UNK
     Dates: start: 20110614, end: 20110618
  16. PREPENEM [Concomitant]
     Dosage: UNK
     Dates: start: 20120116, end: 20120116
  17. LIPITOR [Concomitant]
     Active Substance: ATORVASTATIN CALCIUM
     Dosage: UNK
     Dates: start: 20101104, end: 20120110
  18. KLARICID [Concomitant]
     Active Substance: CLARITHROMYCIN
     Dosage: UNK
     Dates: start: 20110725, end: 20110801
  19. KLARICID [Concomitant]
     Active Substance: CLARITHROMYCIN
     Dosage: UNK
     Dates: start: 20120116
  20. METRONIDAZOLE. [Concomitant]
     Active Substance: METRONIDAZOLE
     Dosage: UNK
     Dates: start: 20120116, end: 20120120
  21. DEXAMETHASONE DISODIUM PHOSPHATE [Concomitant]
     Dosage: UNK
     Dates: start: 20120119, end: 20120119
  22. BLINDED ASPIRIN [Suspect]
     Active Substance: ASPIRIN
     Indication: CEREBRAL INFARCTION
     Dosage: UNK
     Route: 048
     Dates: start: 20110224, end: 20120126
  23. GLIATILIN [Concomitant]
     Dosage: UNK
     Dates: start: 20101101, end: 20120110

REACTIONS (4)
  - Hyperglycaemic hyperosmolar nonketotic syndrome [Recovered/Resolved]
  - Alcoholism [Recovered/Resolved]
  - Pneumonia [Recovered/Resolved]
  - Cerebral infarction [Recovered/Resolved]

NARRATIVE: CASE EVENT DATE: 20110530
